FAERS Safety Report 6154840-1 (Version None)
Quarter: 2009Q2

REPORT INFORMATION
  Report Type: 
  Country: None (occurrence: None)
  Receive Date: 20090414
  Receipt Date: 20090402
  Transmission Date: 20091009
  Serious: Yes (Death)
  Sender: FDA-Public Use
  Company Number: GB-PFIZER INC-2008157874

PATIENT

DRUGS (7)
  1. SUNITINIB MALATE [Suspect]
     Indication: RENAL CELL CARCINOMA
     Dosage: UNK
     Route: 048
     Dates: start: 20080220
  2. BLINDED THERAPY [Suspect]
     Indication: RENAL CELL CARCINOMA
     Dosage: UNK
     Route: 030
     Dates: start: 20080220, end: 20080709
  3. ATENOLOL [Concomitant]
  4. FELODIPINE [Concomitant]
  5. OMEPRAZOLE [Concomitant]
  6. SIMVASTATIN [Concomitant]
  7. ALLOPURINOL [Concomitant]

REACTIONS (2)
  - INTERSTITIAL LUNG DISEASE [None]
  - PNEUMONITIS [None]
